FAERS Safety Report 13573471 (Version 2)
Quarter: 2017Q3

REPORT INFORMATION
  Report Type: Spontaneous
  Country: US (occurrence: US)
  Receive Date: 20170523
  Receipt Date: 20170726
  Transmission Date: 20171127
  Serious: No
  Sender: FDA-Public Use
  Company Number: US-ASTRAZENECA-2017SE51646

PATIENT
  Sex: Female

DRUGS (1)
  1. PULMICORT FLEXHALER [Suspect]
     Active Substance: BUDESONIDE
     Route: 055
     Dates: start: 20170429

REACTIONS (7)
  - Weight fluctuation [Unknown]
  - Device failure [Unknown]
  - Product storage error [Unknown]
  - Intentional product misuse [Unknown]
  - Drug administration error [Unknown]
  - Drug ineffective [Unknown]
  - Drug dose omission [Unknown]
